FAERS Safety Report 14208362 (Version 3)
Quarter: 2017Q4

REPORT INFORMATION
  Report Type: Report from Study
  Country: None (occurrence: AU)
  Receive Date: 20171121
  Receipt Date: 20171125
  Transmission Date: 20180321
  Serious: Yes (Hospitalization)
  Sender: FDA-Public Use
  Company Number: AU-ABBVIE-17K-008-2168529-00

PATIENT
  Age: 27 Year
  Sex: Female

DRUGS (2)
  1. HUMIRA [Suspect]
     Active Substance: ADALIMUMAB
     Indication: PSORIATIC ARTHROPATHY
     Route: 058
     Dates: start: 20170310, end: 2017
  2. LEFLUNOMIDE. [Concomitant]
     Active Substance: LEFLUNOMIDE
     Indication: PSORIATIC ARTHROPATHY
     Route: 048

REACTIONS (3)
  - Hypoaesthesia oral [Not Recovered/Not Resolved]
  - Liver function test abnormal [Recovering/Resolving]
  - Liver function test decreased [Recovering/Resolving]

NARRATIVE: CASE EVENT DATE: 201710
